FAERS Safety Report 5341286-9 (Version None)
Quarter: 2007Q2

REPORT INFORMATION
  Report Type: 
  Country: None (occurrence: None)
  Receive Date: 20070530
  Receipt Date: 20070515
  Transmission Date: 20071010
  Serious: Yes (Other)
  Sender: FDA-Public Use
  Company Number: 2007SP010077

PATIENT
  Age: 60 Year
  Sex: Female

DRUGS (3)
  1. CLARITIN REDITABS [Suspect]
     Indication: LACRIMATION INCREASED
     Dosage: ;QD;PO
     Route: 048
     Dates: start: 20070511, end: 20070512
  2. CLARITIN REDITABS [Suspect]
     Indication: SNEEZING
     Dosage: ;QD;PO
     Route: 048
     Dates: start: 20070511, end: 20070512
  3. ALLEGRA [Concomitant]

REACTIONS (3)
  - LIP SWELLING [None]
  - MALAISE [None]
  - PERIORBITAL OEDEMA [None]
